FAERS Safety Report 21021620 (Version 1)
Quarter: 2022Q2

REPORT INFORMATION
  Report Type: Spontaneous
  Country: US (occurrence: None)
  Receive Date: 20220628
  Receipt Date: 20220628
  Transmission Date: 20220721
  Serious: No
  Sender: FDA-Public Use
  Company Number: None

PATIENT
  Sex: Male

DRUGS (1)
  1. LENALIDOMIDE [Suspect]
     Active Substance: LENALIDOMIDE
     Indication: Myelodysplastic syndrome
     Dosage: ONCE DAILY FOR 21DAYS ON, THEN 7DAYS OFF.
     Route: 048
     Dates: start: 20220504

REACTIONS (2)
  - Peripheral swelling [None]
  - Peripheral swelling [None]
